FAERS Safety Report 8521557-5 (Version None)
Quarter: 2012Q3

REPORT INFORMATION
  Report Type: 
  Country: None (occurrence: None)
  Receive Date: 20120719
  Receipt Date: 20120713
  Transmission Date: 20120928
  Serious: Yes (Other)
  Sender: FDA-Public Use
  Company Number: PHHY2012CH061588

PATIENT
  Age: 44 Year
  Sex: Female
  Weight: 55 kg

DRUGS (1)
  1. GILENYA [Suspect]
     Indication: RELAPSING-REMITTING MULTIPLE SCLEROSIS
     Dosage: 1 DF, UNK
     Route: 048
     Dates: start: 20110915

REACTIONS (3)
  - RAYNAUD'S PHENOMENON [None]
  - PERIPHERAL ISCHAEMIA [None]
  - PAIN IN EXTREMITY [None]
